FAERS Safety Report 18171712 (Version 1)
Quarter: 2020Q3

REPORT INFORMATION
  Report Type: Spontaneous
  Country: US (occurrence: US)
  Receive Date: 20200819
  Receipt Date: 20200819
  Transmission Date: 20201103
  Serious: Yes (Other)
  Sender: FDA-Public Use
  Company Number: US-GILEAD-2020-0490902

PATIENT
  Age: 62 Year
  Sex: Male
  Weight: 100.3 kg

DRUGS (9)
  1. ZINC SULFATE. [Concomitant]
     Active Substance: ZINC SULFATE
  2. LISINOPRIL. [Concomitant]
     Active Substance: LISINOPRIL
  3. CEFTRIAXONE. [Concomitant]
     Active Substance: CEFTRIAXONE
  4. REMDESIVIR. [Suspect]
     Active Substance: REMDESIVIR
     Indication: COVID-19
     Dosage: 100 MG, QD
     Route: 042
     Dates: start: 20200710, end: 20200714
  5. DECADRON [Concomitant]
     Active Substance: DEXAMETHASONE
  6. FAMOTIDINE. [Concomitant]
     Active Substance: FAMOTIDINE
  7. APAP [Concomitant]
     Active Substance: ACETAMINOPHEN
  8. VITAMIN C [Concomitant]
     Active Substance: ASCORBIC ACID
  9. AZITHROMYCIN ANHYDROUS. [Concomitant]
     Active Substance: AZITHROMYCIN ANHYDROUS

REACTIONS (1)
  - Alanine aminotransferase increased [Recovered/Resolved]

NARRATIVE: CASE EVENT DATE: 20200716
